FAERS Safety Report 5412757-1 (Version None)
Quarter: 2007Q3

REPORT INFORMATION
  Report Type: 
  Country: None (occurrence: None)
  Receive Date: 20070809
  Receipt Date: 20070608
  Transmission Date: 20080115
  Serious: Yes (Hospitalization, Other)
  Sender: FDA-Public Use
  Company Number: 001#2#2007-00396

PATIENT
  Age: 76 Year
  Sex: Female

DRUGS (1)
  1. NEUPRO-2MG/ 24H (ROTIGOTINE) [Suspect]
     Indication: PARKINSON'S DISEASE
     Dosage: 2 MG/24H (2 MG/24H 1 IN 1 DAY(S)) TRANSDERMAL
     Route: 062

REACTIONS (3)
  - AUTONOMIC NERVOUS SYSTEM IMBALANCE [None]
  - BLOOD PRESSURE FLUCTUATION [None]
  - HYPERTENSIVE HEART DISEASE [None]
